FAERS Safety Report 14541430 (Version 1)
Quarter: 2018Q1

REPORT INFORMATION
  Report Type: Spontaneous
  Country: CH (occurrence: CH)
  Receive Date: 20180216
  Receipt Date: 20180216
  Transmission Date: 20180509
  Serious: Yes (Disabling)
  Sender: FDA-Public Use
  Company Number: CH-OTSUKA-DJ20105050

PATIENT
  Age: 40 Year
  Sex: Female

DRUGS (1)
  1. ABILIFY [Suspect]
     Active Substance: ARIPIPRAZOLE
     Indication: SCHIZOAFFECTIVE DISORDER
     Dosage: 15 MG, UNK
     Route: 048
     Dates: start: 200912

REACTIONS (3)
  - Tooth loss [Unknown]
  - Periodontitis [Unknown]
  - Bone atrophy [Unknown]

NARRATIVE: CASE EVENT DATE: 201003
